FAERS Safety Report 10240065 (Version 1)
Quarter: 2014Q2

REPORT INFORMATION
  Report Type: Spontaneous
  Country: US (occurrence: US)
  Receive Date: 20140617
  Receipt Date: 20140617
  Transmission Date: 20141212
  Serious: No
  Sender: FDA-Public Use
  Company Number: 2014SP001758

PATIENT
  Sex: Female

DRUGS (17)
  1. DOXYCYCLINE [Suspect]
     Indication: PRODUCT USED FOR UNKNOWN INDICATION
  2. METHOTREXATE [Suspect]
     Indication: PRODUCT USED FOR UNKNOWN INDICATION
  3. CYCLOBENZAPRINE [Suspect]
     Indication: PRODUCT USED FOR UNKNOWN INDICATION
  4. GABAPENTIN [Suspect]
     Indication: PRODUCT USED FOR UNKNOWN INDICATION
  5. OXYCOCET [Concomitant]
  6. DULOXETINE [Concomitant]
  7. ERGOCALCIFEROL [Concomitant]
  8. ERGOCALCIFEROL [Concomitant]
  9. LEVOTHYROXINE [Concomitant]
  10. AMITRIPTYLINE [Concomitant]
  11. AMLODIPINE [Concomitant]
  12. OMEPRAZOLE [Concomitant]
  13. ZOLPIDEM [Concomitant]
  14. CYANOCOBALAMIN [Concomitant]
  15. CALCIUM CHLORIDE [Concomitant]
  16. PREGABALIN [Concomitant]
  17. DOCUSATE SODIUM [Concomitant]

REACTIONS (1)
  - Drug hypersensitivity [Unknown]
